FAERS Safety Report 9046208 (Version 1)
Quarter: 2013Q1

REPORT INFORMATION
  Report Type: Spontaneous
  Country: US (occurrence: US)
  Receive Date: 20130201
  Receipt Date: 20130201
  Transmission Date: 20140127
  Serious: Yes (Hospitalization)
  Sender: FDA-Public Use
  Company Number: PHEH2013US002064

PATIENT
  Sex: Female
  Weight: 200 kg

DRUGS (16)
  1. DIOVAN [Suspect]
     Indication: HYPERTENSION
     Dosage: 160 MG, QD
     Route: 048
  2. DIOVAN [Suspect]
     Dosage: 320 MG, UNK
  3. EFFEXOR-XR [Concomitant]
     Dosage: 75 MG, UNK
  4. THYROID [Concomitant]
     Dosage: UNK UKN, UNK
  5. THYROID [Concomitant]
     Dosage: DOSE INCREASED
  6. BABY ASPIRIN [Concomitant]
     Dosage: UNK UKN, UNK
  7. BABY ASPIRIN [Concomitant]
     Dosage: DOSE INCREASED
  8. XARELTO [Concomitant]
     Dosage: UNK UKN, UNK
  9. XARELTO [Concomitant]
     Dosage: DOSE INCREASED
  10. METOPROLOL [Concomitant]
  11. DIGOXIN [Concomitant]
     Dosage: 128 MG, UNK
  12. CRESTOR [Concomitant]
  13. BETA BLOCKING AGENTS [Concomitant]
  14. SYNTHYROID [Concomitant]
  15. IRON [Concomitant]
  16. TOPIROL [Concomitant]

REACTIONS (5)
  - Atrial fibrillation [Unknown]
  - Malaise [Unknown]
  - Dyspnoea [Unknown]
  - Chest discomfort [Unknown]
  - Chest pain [Unknown]
